FAERS Safety Report 10489419 (Version 1)
Quarter: 2014Q3

REPORT INFORMATION
  Report Type: Spontaneous
  Country: IT (occurrence: None)
  Receive Date: 20140930
  Receipt Date: 20140930
  Transmission Date: 20150326
  Serious: Yes (Hospitalization)
  Sender: FDA-Public Use
  Company Number: DEP_02308_2014

PATIENT
  Sex: Female

DRUGS (1)
  1. PECFENT [Suspect]
     Active Substance: FENTANYL CITRATE
     Indication: PRODUCT USED FOR UNKNOWN INDICATION
     Dosage: 100 UG 1 BOTTLE

REACTIONS (3)
  - Confusional state [None]
  - Dysstasia [None]
  - Disorientation [None]

NARRATIVE: CASE EVENT DATE: 20140310
